FAERS Safety Report 7845655-4 (Version None)
Quarter: 2011Q4

REPORT INFORMATION
  Report Type: 
  Country: None (occurrence: None)
  Receive Date: 20111018
  Receipt Date: 20111012
  Transmission Date: 20120403
  Serious: Yes (Hospitalization)
  Sender: FDA-Public Use
  Company Number: 2011SP048319

PATIENT
  Age: 28 Year
  Sex: Female
  Weight: 99.7913 kg

DRUGS (2)
  1. IMPLANON [Suspect]
     Indication: CONTRACEPTION
     Dates: start: 20100722
  2. NOVOLOG [Concomitant]

REACTIONS (4)
  - METRORRHAGIA [None]
  - MENORRHAGIA [None]
  - OVARIAN TORSION [None]
  - AMENORRHOEA [None]
